FAERS Safety Report 19981987 (Version 26)
Quarter: 2022Q3

REPORT INFORMATION
  Report Type: Report from Study
  Country: PT (occurrence: PT)
  Receive Date: 20211022
  Receipt Date: 20220912
  Transmission Date: 20221027
  Serious: Yes (Disabling)
  Sender: FDA-Public Use
  Company Number: PT-ABBVIE-21K-130-4021588-00

PATIENT
  Sex: Female

DRUGS (16)
  1. CARBIDOPA\LEVODOPA [Suspect]
     Active Substance: CARBIDOPA\LEVODOPA
     Indication: Parkinson^s disease
     Dosage: 20 MG PLUS 5 MG MORNING 8.4ML, MAINT 4.2ML/H, EXTRA 1ML
     Route: 050
     Dates: start: 20210422, end: 2021
  2. CARBIDOPA\LEVODOPA [Suspect]
     Active Substance: CARBIDOPA\LEVODOPA
     Dosage: 20 MG PLUS 5 MG MORN 8.4ML, MAINT 4.4ML/H, EXTRA 1ML
     Route: 050
     Dates: start: 2021, end: 2021
  3. CARBIDOPA\LEVODOPA [Suspect]
     Active Substance: CARBIDOPA\LEVODOPA
     Dosage: EXTRA DOSES INCREASED
     Route: 050
     Dates: start: 2021, end: 2021
  4. CARBIDOPA\LEVODOPA [Suspect]
     Active Substance: CARBIDOPA\LEVODOPA
     Route: 050
     Dates: start: 2021, end: 20211022
  5. CARBIDOPA\LEVODOPA [Suspect]
     Active Substance: CARBIDOPA\LEVODOPA
     Dosage: MD 8.4CC, MD 4.7CC/H, EXTRA DOSE1CC 20 MG PLUS 5 MG
     Route: 050
     Dates: start: 20211022, end: 20211223
  6. CARBIDOPA\LEVODOPA [Suspect]
     Active Substance: CARBIDOPA\LEVODOPA
     Dosage: MD 8.4CC, MAINT 5CC/H, EXTRA DOSE 1CC 20 MG PLUS 5 MG
     Route: 050
     Dates: start: 20211223, end: 202203
  7. CARBIDOPA\LEVODOPA [Suspect]
     Active Substance: CARBIDOPA\LEVODOPA
     Dosage: MORN 9CC, MAINT 5.5CC/H , EXTRA 2CC 20 MG PLUS 5 MG
     Route: 050
     Dates: start: 20220304, end: 20220315
  8. CARBIDOPA\LEVODOPA [Suspect]
     Active Substance: CARBIDOPA\LEVODOPA
     Dosage: 20 MG PLUS 5 MG MORN 10CC, MAINT 5.9CC/H, EXTRA 2CC
     Route: 050
     Dates: start: 20220315, end: 202204
  9. CARBIDOPA\LEVODOPA [Suspect]
     Active Substance: CARBIDOPA\LEVODOPA
     Dosage: 20 MG PLUS 5 MG, MORN:12CC;MAINT:6.2CC/H;EXTRA:2CC
     Route: 050
     Dates: start: 20220403, end: 20220407
  10. CARBIDOPA\LEVODOPA [Suspect]
     Active Substance: CARBIDOPA\LEVODOPA
     Dosage: 20 MG PLUS 5 MG, MORN:12CC;MAINT:6.5CC/H;EXTRA:2CC
     Route: 050
     Dates: start: 20220407, end: 20220503
  11. CARBIDOPA\LEVODOPA [Suspect]
     Active Substance: CARBIDOPA\LEVODOPA
     Dosage: 20 MG + 5 MG; MORNING DOSE: 15ML; MAINTENANCE DOSE: 6.8ML/H; EXTRA DOSE: 2.5ML
     Route: 050
     Dates: start: 20220503, end: 20220520
  12. CARBIDOPA\LEVODOPA [Suspect]
     Active Substance: CARBIDOPA\LEVODOPA
     Dosage: 20 MG AND 5 MG?MORN:17CC;MAINT:7.1CC/H;EXTRA:3CC
     Route: 050
     Dates: start: 20220520, end: 202206
  13. CARBIDOPA\LEVODOPA [Suspect]
     Active Substance: CARBIDOPA\LEVODOPA
     Dosage: 20 MG AND 5 MG?MORN:17CC;MAINT:7.1CC/H;EXTRA:3CC
     Route: 050
     Dates: start: 20220817, end: 20220828
  14. CARBIDOPA\LEVODOPA [Suspect]
     Active Substance: CARBIDOPA\LEVODOPA
     Dosage: 20 MG AND 5 MG?MORN:17CC;MAINT:7.1CC/H;EXTRA:3CC (PEG)
     Route: 050
     Dates: start: 20220828, end: 202209
  15. CLOZAPINE [Concomitant]
     Active Substance: CLOZAPINE
     Indication: Product used for unknown indication
     Dates: start: 202110, end: 2022
  16. CLOZAPINE [Concomitant]
     Active Substance: CLOZAPINE
     Dosage: HALF TABLET BREAKFAST, HALF LUNCH,125 MG NIGHT
     Dates: start: 202205

REACTIONS (28)
  - Loss of personal independence in daily activities [Unknown]
  - Depressed mood [Recovering/Resolving]
  - Posture abnormal [Not Recovered/Not Resolved]
  - Back pain [Recovering/Resolving]
  - Skin abrasion [Recovered/Resolved]
  - Mood swings [Recovering/Resolving]
  - Balance disorder [Not Recovered/Not Resolved]
  - Fall [Recovered/Resolved]
  - Fall [Recovered/Resolved]
  - Gait disturbance [Recovered/Resolved]
  - Unevaluable event [Recovering/Resolving]
  - Therapeutic product effect incomplete [Recovered/Resolved]
  - Freezing phenomenon [Recovered/Resolved]
  - Bradykinesia [Recovered/Resolved]
  - Hallucination, auditory [Recovered/Resolved]
  - Device dislocation [Unknown]
  - Parkinsonian gait [Not Recovered/Not Resolved]
  - Fall [Recovered/Resolved]
  - On and off phenomenon [Not Recovered/Not Resolved]
  - Gait disturbance [Recovered/Resolved]
  - Therapeutic product effect incomplete [Not Recovered/Not Resolved]
  - Fall [Not Recovered/Not Resolved]
  - Gait disturbance [Not Recovered/Not Resolved]
  - Hallucination [Not Recovered/Not Resolved]
  - Bradykinesia [Not Recovered/Not Resolved]
  - Dysarthria [Not Recovered/Not Resolved]
  - Freezing phenomenon [Not Recovered/Not Resolved]
  - Incorrect route of product administration [Recovered/Resolved]

NARRATIVE: CASE EVENT DATE: 20210101
